FAERS Safety Report 8334432-6 (Version None)
Quarter: 2012Q2

REPORT INFORMATION
  Report Type: 
  Country: None (occurrence: None)
  Receive Date: 20120503
  Receipt Date: 20111108
  Transmission Date: 20120825
  Serious: No
  Sender: FDA-Public Use
  Company Number: US-BAUSCH-2011BL007829

PATIENT
  Age: 44 Year
  Sex: Female

DRUGS (1)
  1. LOTEMAX [Suspect]
     Indication: IRITIS
     Route: 047
     Dates: start: 20111031, end: 20111104

REACTIONS (4)
  - ERYTHEMA [None]
  - OCULAR HYPERAEMIA [None]
  - SWELLING FACE [None]
  - EYE IRRITATION [None]
